FAERS Safety Report 18638600 (Version 3)
Quarter: 2021Q2

REPORT INFORMATION
  Report Type: Report from Study
  Country: CA (occurrence: CA)
  Receive Date: 20201219
  Receipt Date: 20210521
  Transmission Date: 20210717
  Serious: Yes (Other)
  Sender: FDA-Public Use
  Company Number: CA-SHIRE-CA202019771

PATIENT
  Age: 60 Year
  Sex: Female

DRUGS (6)
  1. IMBRUVICA [Concomitant]
     Active Substance: IBRUTINIB
     Indication: PRODUCT USED FOR UNKNOWN INDICATION
     Dosage: UNK
     Route: 065
  2. CUVITRU [Suspect]
     Active Substance: HUMAN IMMUNOGLOBULIN G
     Indication: SECONDARY IMMUNODEFICIENCY
     Dosage: 7 GRAM, 1X/WEEK
     Route: 058
     Dates: start: 20190409
  3. IMBRUVICA [Concomitant]
     Active Substance: IBRUTINIB
     Dosage: 10 MILLIGRAM, QD
     Route: 065
  4. VITAMINS [Concomitant]
     Active Substance: VITAMINS
     Dosage: 10 MILLIGRAM, QD
     Route: 065
  5. ESCITALOPRAM [Concomitant]
     Active Substance: ESCITALOPRAM OXALATE
     Indication: PRODUCT USED FOR UNKNOWN INDICATION
     Dosage: 10 MILLIGRAM, QD
     Route: 065
  6. VITAMINS [Concomitant]
     Active Substance: VITAMINS
     Indication: PRODUCT USED FOR UNKNOWN INDICATION
     Dosage: UNK
     Route: 065

REACTIONS (11)
  - Malaise [Unknown]
  - Gastrooesophageal reflux disease [Unknown]
  - COVID-19 [Unknown]
  - Night sweats [Unknown]
  - Parainfluenzae virus infection [Unknown]
  - Depression [Unknown]
  - Spleen disorder [Unknown]
  - Dyspepsia [Unknown]
  - Anxiety [Unknown]
  - Fatigue [Unknown]
  - Tinnitus [Recovered/Resolved]

NARRATIVE: CASE EVENT DATE: 201912
